FAERS Safety Report 4736268-1 (Version None)
Quarter: 2005Q3

REPORT INFORMATION
  Report Type: 
  Country: None (occurrence: None)
  Receive Date: 20050802
  Receipt Date: 20050720
  Transmission Date: 20060218
  Serious: Yes (Hospitalization)
  Sender: FDA-Public Use
  Company Number: 2005105322

PATIENT
  Age: 81 Year
  Sex: Female
  Weight: 55 kg

DRUGS (11)
  1. LINEZOLID TABLET (LINEZOLID) [Suspect]
     Indication: STAPHYLOCOCCAL INFECTION
     Dosage: 1200 MG (600 MG, BID INTERVAL: EVERY DAY), ORAL
     Route: 048
     Dates: start: 20050702, end: 20050704
  2. LINEZOLID TABLET (LINEZOLID) [Suspect]
     Indication: ULCER
     Dosage: 1200 MG (600 MG, BID INTERVAL: EVERY DAY), ORAL
     Route: 048
     Dates: start: 20050702, end: 20050704
  3. FLUOXETINE [Suspect]
     Indication: ILL-DEFINED DISORDER
     Dosage: (20 MG), ORAL
     Route: 048
     Dates: start: 20050501, end: 20050704
  4. VANCOMYCIN [Concomitant]
  5. TETRACYCLINE [Concomitant]
  6. CELECOXIB (CELECOXIB) [Concomitant]
  7. AMITRIPTYLINE HCL [Concomitant]
  8. LANSOPRALZOLE (LANSOPRAZOLE) [Concomitant]
  9. ACETAMINOPHEN [Concomitant]
  10. CODEINE PHOSPHATE (CODEINE PHOSPHATE) [Concomitant]
  11. SLOW SODIUM (SODIUM CHLORIDE) [Concomitant]

REACTIONS (3)
  - BLOOD PRESSURE DECREASED [None]
  - HYPOTHERMIA [None]
  - WHITE BLOOD CELL COUNT DECREASED [None]
